FAERS Safety Report 18553468 (Version 1)
Quarter: 2020Q4

REPORT INFORMATION
  Report Type: Not Available
  Country: US (occurrence: US)
  Receive Date: 20201127
  Receipt Date: 20201127
  Transmission Date: 20210114
  Serious: No
  Sender: FDA-Public Use
  Company Number: US-NEUROCRINE BIOSCIENCES INC.-2020NBI04229

PATIENT
  Age: 74 Year
  Sex: Female

DRUGS (9)
  1. TRAZODONE [Concomitant]
     Active Substance: TRAZODONE HYDROCHLORIDE
  2. AMLODIPINE [Concomitant]
     Active Substance: AMLODIPINE BESYLATE
  3. ESTRADIOL. [Concomitant]
     Active Substance: ESTRADIOL
  4. AMANTADINE. [Concomitant]
     Active Substance: AMANTADINE HYDROCHLORIDE
  5. TRAMADOL. [Concomitant]
     Active Substance: TRAMADOL
  6. CITALOPRAM [Concomitant]
     Active Substance: CITALOPRAM HYDROBROMIDE
  7. INGREZZA [Suspect]
     Active Substance: VALBENAZINE
     Indication: TARDIVE DYSKINESIA
     Route: 048
     Dates: start: 20180516
  8. LOSARTAN. [Concomitant]
     Active Substance: LOSARTAN
  9. BENZATROPINE [Concomitant]
     Active Substance: BENZTROPINE

REACTIONS (2)
  - Feeling abnormal [Unknown]
  - Stress [Unknown]

NARRATIVE: CASE EVENT DATE: 20201105
